FAERS Safety Report 23617649 (Version 1)
Quarter: 2024Q1

REPORT INFORMATION
  Report Type: Spontaneous
  Country: US (occurrence: None)
  Receive Date: 20240310
  Receipt Date: 20240310
  Transmission Date: 20240410
  Serious: Yes (Disabling)
  Sender: FDA-Public Use
  Company Number: None

PATIENT
  Age: 84 Year
  Sex: Male
  Weight: 67.5 kg

DRUGS (8)
  1. HALDOL [Suspect]
     Active Substance: HALOPERIDOL
     Indication: Dementia Alzheimer^s type
     Dates: start: 20240201
  2. SEROQUEL [Suspect]
     Active Substance: QUETIAPINE FUMARATE
  3. DEPAKOTE [Suspect]
     Active Substance: DIVALPROEX SODIUM
  4. GABAPENTIN [Concomitant]
     Active Substance: GABAPENTIN
  5. CARDURA [Concomitant]
     Active Substance: DOXAZOSIN MESYLATE
  6. FLOMAX [Concomitant]
     Active Substance: TAMSULOSIN HYDROCHLORIDE
  7. CELEBREX [Concomitant]
     Active Substance: CELECOXIB
  8. TYLENOL [Concomitant]
     Active Substance: ACETAMINOPHEN

REACTIONS (2)
  - Somnolence [None]
  - Somnolence [None]

NARRATIVE: CASE EVENT DATE: 20240308
